FAERS Safety Report 25400472 (Version 2)
Quarter: 2025Q2

REPORT INFORMATION
  Report Type: Other
  Country: JP (occurrence: JP)
  Receive Date: 20250605
  Receipt Date: 20250626
  Transmission Date: 20250717
  Serious: Yes (Other)
  Sender: ESTEVE
  Company Number: JP-Esteve Pharmaceuticals SA-2178091

PATIENT
  Age: 29 Year
  Sex: Female

DRUGS (17)
  1. METOPIRONE [Suspect]
     Active Substance: METYRAPONE
     Indication: Cushing^s syndrome
     Dates: start: 20240412
  2. METOPIRONE [Suspect]
     Active Substance: METYRAPONE
     Dates: start: 20240413, end: 20240427
  3. RINDERON [Concomitant]
     Dates: start: 20240410, end: 20240411
  4. CEFOTAXIME [Concomitant]
     Active Substance: CEFOTAXIME SODIUM
     Dates: start: 20240412, end: 20240418
  5. CEFTRIAXONE SODIUM [Concomitant]
     Active Substance: CEFTRIAXONE SODIUM
     Dates: start: 20240410, end: 20240411
  6. NICARDIPINE HYDROCHLORIDE [Concomitant]
     Active Substance: NICARDIPINE HYDROCHLORIDE
     Dates: start: 20240405, end: 20240426
  7. KCL [Concomitant]
     Active Substance: POTASSIUM CHLORIDE
     Dates: start: 20240403, end: 20240415
  8. DEXTROSE\MAGNESIUM SULFATE HEPTAHYDRATE [Concomitant]
     Active Substance: DEXTROSE\MAGNESIUM SULFATE HEPTAHYDRATE
     Dates: start: 20240403, end: 20240428
  9. POTASSIUM GLUCONATE [Concomitant]
     Active Substance: POTASSIUM GLUCONATE
     Dates: start: 20240418, end: 20240428
  10. DESMOPRESSIN ACETATE [Concomitant]
     Active Substance: DESMOPRESSIN ACETATE
     Dates: start: 20240409, end: 20240427
  11. MAGNESIUM OXIDE [Concomitant]
     Active Substance: MAGNESIUM OXIDE
     Dates: start: 20240409, end: 20240428
  12. NIFEDIPINE [Concomitant]
     Active Substance: NIFEDIPINE
     Dates: start: 20240410, end: 20240413
  13. NIFEDIPINE [Concomitant]
     Active Substance: NIFEDIPINE
     Dates: start: 20240403, end: 20240405
  14. FERRIC CITRATE ANHYDROUS [Concomitant]
     Active Substance: FERRIC CITRATE ANHYDROUS
     Dates: start: 20240401, end: 20240428
  15. ALDOMET [Concomitant]
     Active Substance: METHYLDOPA
  16. NORVACC [Concomitant]
     Dates: start: 20231225, end: 20240331
  17. LEVOTHYROXINE [Concomitant]
     Active Substance: LEVOTHYROXINE

REACTIONS (3)
  - Pre-eclampsia [Recovered/Resolved]
  - Caesarean section [Unknown]
  - Exposure during pregnancy [Unknown]

NARRATIVE: CASE EVENT DATE: 20240426
